FAERS Safety Report 5219116-5 (Version None)
Quarter: 2007Q1

REPORT INFORMATION
  Report Type: 
  Country: None (occurrence: None)
  Receive Date: 20070125
  Receipt Date: 20070117
  Transmission Date: 20070707
  Serious: Yes (Hospitalization)
  Sender: FDA-Public Use
  Company Number: JP-JNJFOC-20070105166

PATIENT
  Age: 56 Year
  Sex: Female

DRUGS (6)
  1. REMICADE [Suspect]
  2. REMICADE [Suspect]
  3. REMICADE [Suspect]
     Indication: RHEUMATOID ARTHRITIS
  4. ISCOTIN [Suspect]
     Indication: DRUG USE FOR UNKNOWN INDICATION
     Route: 048
  5. RHEUMATREX [Concomitant]
     Indication: RHEUMATOID ARTHRITIS
     Route: 048
  6. PREDONINE [Concomitant]
     Route: 048

REACTIONS (9)
  - ANOREXIA [None]
  - CONFUSIONAL STATE [None]
  - DIZZINESS [None]
  - DYSGEUSIA [None]
  - ENCEPHALOPATHY [None]
  - FOREIGN BODY TRAUMA [None]
  - MYOCLONIC EPILEPSY [None]
  - PNEUMONIA [None]
  - URINARY TRACT INFECTION [None]
